FAERS Safety Report 5159227-6 (Version None)
Quarter: 2006Q4

REPORT INFORMATION
  Report Type: 
  Country: None (occurrence: None)
  Receive Date: 20061120
  Receipt Date: 20061103
  Transmission Date: 20070319
  Serious: Yes (Life-Threatening, Hospitalization)
  Sender: FDA-Public Use
  Company Number: 230667

PATIENT
  Age: 48 Year
  Sex: Male

DRUGS (2)
  1. RAPTIVA [Suspect]
     Indication: PSORIASIS
     Dosage: 0.8 ML, 1/WEEK, SUBCUTANEOUS
     Route: 058
     Dates: start: 20051011, end: 20051115
  2. RAPTIVA [Suspect]
     Indication: PSORIASIS
     Dosage: 0.8 ML, 1/WEEK, SUBCUTANEOUS
     Route: 058
     Dates: start: 20051206

REACTIONS (1)
  - BLADDER CANCER [None]
